FAERS Safety Report 5277744-5 (Version None)
Quarter: 2007Q1

REPORT INFORMATION
  Report Type: 
  Country: None (occurrence: None)
  Receive Date: 20070327
  Receipt Date: 20070315
  Transmission Date: 20070707
  Serious: Yes (Hospitalization, Other)
  Sender: FDA-Public Use
  Company Number: US-PFIZER INC-2005114605

PATIENT
  Sex: Male

DRUGS (13)
  1. NEURONTIN [Suspect]
     Indication: TORTICOLLIS
     Dates: start: 20001101, end: 20040717
  2. EFFEXOR [Concomitant]
  3. ABILIFY [Concomitant]
  4. CLONIDINE [Concomitant]
  5. DARVOCET [Concomitant]
  6. TOPAMAX [Concomitant]
  7. RISPERDAL [Concomitant]
  8. LITHIUM CARBONATE [Concomitant]
  9. TRAZODONE HCL [Concomitant]
  10. DEPAKENE [Concomitant]
  11. INDERAL [Concomitant]
  12. COGENTIN [Concomitant]
  13. SEROQUEL [Concomitant]

REACTIONS (4)
  - DRUG INEFFECTIVE [None]
  - HALLUCINATION [None]
  - INTENTIONAL OVERDOSE [None]
  - SUICIDE ATTEMPT [None]
